FAERS Safety Report 6558980-4 (Version None)
Quarter: 2010Q1

REPORT INFORMATION
  Report Type: 
  Country: None (occurrence: None)
  Receive Date: 20100129
  Receipt Date: 20100120
  Transmission Date: 20100710
  Serious: Yes (Other)
  Sender: FDA-Public Use
  Company Number: GB-ABBOTT-10P-167-0622153-00

PATIENT
  Sex: Male

DRUGS (2)
  1. PROSTAP 3 [Suspect]
     Indication: TRANS-SEXUALISM
     Route: 050
  2. OESTROGEN [Concomitant]
     Indication: DRUG USE FOR UNKNOWN INDICATION

REACTIONS (3)
  - DRY SKIN [None]
  - EYE SWELLING [None]
  - VISUAL IMPAIRMENT [None]
